FAERS Safety Report 4534501-2 (Version None)
Quarter: 2004Q4

REPORT INFORMATION
  Report Type: 
  Country: None (occurrence: None)
  Receive Date: 20041221
  Receipt Date: 20041221
  Transmission Date: 20050328
  Serious: No
  Sender: FDA-Public Use
  Company Number: None

PATIENT
  Age: 69 Year
  Sex: Female

DRUGS (6)
  1. CHLORDIAZEPAMIDE/CLIDINIU CAP A018 5/2.5 [Suspect]
     Indication: NERVOUSNESS
     Dosage: 1 CAPSULE TWICE A DAY
     Dates: start: 20041020, end: 20041220
  2. ZOCOR [Concomitant]
  3. SECTRAL [Concomitant]
  4. FOSAMAX [Concomitant]
  5. EVISTA [Concomitant]
  6. PRILOSEC [Concomitant]

REACTIONS (3)
  - DYSGEUSIA [None]
  - NERVOUSNESS [None]
  - PAROSMIA [None]
